FAERS Safety Report 8200259-9 (Version None)
Quarter: 2012Q1

REPORT INFORMATION
  Report Type: 
  Country: None (occurrence: None)
  Receive Date: 20120312
  Receipt Date: 20120307
  Transmission Date: 20120608
  Serious: Yes (Other)
  Sender: FDA-Public Use
  Company Number: NL-PFIZER INC-2012061728

PATIENT
  Sex: Male
  Weight: 72 kg

DRUGS (3)
  1. LIPITOR [Suspect]
     Indication: AORTIC VALVE REPLACEMENT
  2. CARBASALATE CALCIUM [Concomitant]
     Indication: AORTIC VALVE REPLACEMENT
     Dosage: 100 UNK, UNK
     Route: 048
     Dates: start: 20070101
  3. LIPITOR [Suspect]
     Indication: HYPERCHOLESTEROLAEMIA
     Dosage: 20 MG, UNK
     Route: 048
     Dates: start: 20070101, end: 20120308

REACTIONS (3)
  - DEAFNESS NEUROSENSORY [None]
  - MUSCLE SPASMS [None]
  - PARAESTHESIA [None]
